FAERS Safety Report 4411652-4 (Version None)
Quarter: 2004Q3

REPORT INFORMATION
  Report Type: 
  Country: None (occurrence: None)
  Receive Date: 20040727
  Receipt Date: 20040720
  Transmission Date: 20050211
  Serious: No
  Sender: FDA-Public Use
  Company Number: JP-JNJFOC-20040703245

PATIENT
  Sex: 0

DRUGS (1)
  1. RISPERDAL [Suspect]

REACTIONS (1)
  - NO ADVERSE DRUG EFFECT [None]
